FAERS Safety Report 11450318 (Version 1)
Quarter: 2015Q3

REPORT INFORMATION
  Report Type: Spontaneous
  Country: US (occurrence: US)
  Receive Date: 20150903
  Receipt Date: 20150903
  Transmission Date: 20151125
  Serious: No
  Sender: FDA-Public Use
  Company Number: US-ROCHE-1058008

PATIENT
  Sex: Female

DRUGS (4)
  1. TELAPREVIR [Suspect]
     Active Substance: TELAPREVIR
     Indication: HEPATITIS C
     Dosage: DIVIDED DOSE
     Route: 065
     Dates: start: 20120316
  2. RIBASPHERE RIBAPAK [Suspect]
     Active Substance: RIBAVIRIN
     Indication: HEPATITIS C
     Dosage: DIVIDED DOSE
     Route: 065
     Dates: start: 20120316
  3. PEGASYS [Suspect]
     Active Substance: PEGINTERFERON ALFA-2A
     Indication: HEPATITIS C
     Dosage: DIVIDED DOSE
     Route: 065
     Dates: start: 20120316
  4. PEGASYS [Suspect]
     Active Substance: PEGINTERFERON ALFA-2A
     Route: 065

REACTIONS (12)
  - Asthenia [Unknown]
  - Epistaxis [Unknown]
  - Hypotension [Unknown]
  - Poor quality drug administered [Unknown]
  - Proctalgia [Unknown]
  - Red blood cell count decreased [Unknown]
  - Confusional state [Unknown]
  - Fluid retention [Unknown]
  - Anaemia [Unknown]
  - Malaise [Unknown]
  - Dizziness [Unknown]
  - Insomnia [Unknown]
